FAERS Safety Report 25966813 (Version 2)
Quarter: 2025Q4

REPORT INFORMATION
  Report Type: Report from Study
  Country: CO (occurrence: CO)
  Receive Date: 20251028
  Receipt Date: 20251127
  Transmission Date: 20260117
  Serious: Yes (Hospitalization)
  Sender: ABBVIE
  Company Number: CO-ABBVIE-6491786

PATIENT
  Age: 53 Year
  Sex: Female
  Weight: 43 kg

DRUGS (2)
  1. RINVOQ [Suspect]
     Active Substance: UPADACITINIB
     Indication: Rheumatoid arthritis
     Dosage: TAKE 3 TABLETS OF 15 MG PER DAY?MODIFIED-RELEASE TABLET
     Route: 048
     Dates: start: 20250828, end: 20250929
  2. RINVOQ [Suspect]
     Active Substance: UPADACITINIB
     Indication: Rheumatoid arthritis
     Dosage: TAKE 3 TABLETS OF 15 MG PER DAY?MODIFIED-RELEASE TABLET
     Route: 048
     Dates: start: 20251004, end: 20251111

REACTIONS (3)
  - Small intestinal obstruction [Unknown]
  - Crohn^s disease [Not Recovered/Not Resolved]
  - Gastrointestinal disorder [Unknown]

NARRATIVE: CASE EVENT DATE: 20250901
